FAERS Safety Report 4933546-8 (Version None)
Quarter: 2006Q1

REPORT INFORMATION
  Report Type: 
  Country: None (occurrence: None)
  Receive Date: 20060117
  Receipt Date: 20050729
  Transmission Date: 20060701
  Serious: No
  Sender: FDA-Public Use
  Company Number: 2005089963

PATIENT
  Age: 77 Year
  Sex: Female

DRUGS (4)
  1. MACUGEN [Suspect]
     Indication: MACULAR DEGENERATION
     Dosage: INTRAVITREOUS
     Dates: start: 20050101
  2. FOSAMAX [Concomitant]
  3. MOBIC [Concomitant]
  4. IMURAN [Concomitant]

REACTIONS (2)
  - HYPHAEMA [None]
  - VISUAL ACUITY REDUCED [None]
